FAERS Safety Report 4699744-6 (Version None)
Quarter: 2005Q2

REPORT INFORMATION
  Report Type: 
  Country: None (occurrence: None)
  Receive Date: 20050623
  Receipt Date: 20050616
  Transmission Date: 20051028
  Serious: Yes (Hospitalization)
  Sender: FDA-Public Use
  Company Number: 028-20785-05060280

PATIENT
  Age: 47 Year
  Sex: Male

DRUGS (4)
  1. THALOMID [Suspect]
     Indication: MULTIPLE MYELOMA
     Dosage: 50-200MG, DAILY,ORAL
     Route: 048
     Dates: start: 20041001
  2. LAMIVUDINE [Concomitant]
  3. PAMIDRONATE DISODIUM [Concomitant]
  4. ADALAT [Concomitant]

REACTIONS (2)
  - HYDRONEPHROSIS [None]
  - RENAL FAILURE [None]
